FAERS Safety Report 26104795 (Version 1)
Quarter: 2025Q4

REPORT INFORMATION
  Report Type: Spontaneous
  Country: KR (occurrence: KR)
  Receive Date: 20251130
  Receipt Date: 20251130
  Transmission Date: 20260118
  Serious: Yes (Death, Life-Threatening, Other)
  Sender: ALKEM
  Company Number: None

PATIENT
  Age: 50 Year
  Sex: Male

DRUGS (15)
  1. MYCOPHENOLATE MOFETIL [Suspect]
     Active Substance: MYCOPHENOLATE MOFETIL
     Indication: Immunosuppressant drug therapy
     Dosage: 500 MILLIGRAM, QD (DAILY)
     Route: 065
  2. MYCOPHENOLATE MOFETIL [Suspect]
     Active Substance: MYCOPHENOLATE MOFETIL
     Indication: Interstitial lung disease
     Dosage: UNK
     Route: 065
  3. TACROLIMUS [Suspect]
     Active Substance: TACROLIMUS
     Indication: Immunosuppressant drug therapy
     Dosage: UNK
     Route: 065
  4. METHYLPREDNISOLONE [Suspect]
     Active Substance: METHYLPREDNISOLONE
     Indication: Immunosuppressant drug therapy
     Dosage: 1 GRAM
     Route: 065
  5. METHYLPREDNISOLONE [Suspect]
     Active Substance: METHYLPREDNISOLONE
     Indication: Interstitial lung disease
     Dosage: UNK
     Route: 065
  6. BASILIXIMAB [Suspect]
     Active Substance: BASILIXIMAB
     Indication: Immunosuppressant drug therapy
     Dosage: 20 MILLIGRAM (INDUCTION)
     Route: 065
  7. VORICONAZOLE [Concomitant]
     Active Substance: VORICONAZOLE
     Indication: Prophylaxis
     Dosage: 200 MILLIGRAM, BID
     Route: 065
  8. VORICONAZOLE [Concomitant]
     Active Substance: VORICONAZOLE
     Indication: Renal abscess
  9. VORICONAZOLE [Concomitant]
     Active Substance: VORICONAZOLE
     Indication: Liver abscess
  10. VORICONAZOLE [Concomitant]
     Active Substance: VORICONAZOLE
     Indication: Disseminated aspergillosis
  11. VORICONAZOLE [Concomitant]
     Active Substance: VORICONAZOLE
     Indication: Aspergillus infection
  12. VORICONAZOLE [Concomitant]
     Active Substance: VORICONAZOLE
     Indication: Colonic abscess
  13. VORICONAZOLE [Concomitant]
     Active Substance: VORICONAZOLE
     Indication: Pancreatic abscess
  14. VORICONAZOLE [Concomitant]
     Active Substance: VORICONAZOLE
     Indication: Splenic abscess
  15. VORICONAZOLE [Concomitant]
     Active Substance: VORICONAZOLE
     Indication: Systemic mycosis

REACTIONS (8)
  - Renal abscess [Fatal]
  - Liver abscess [Fatal]
  - Disseminated aspergillosis [Fatal]
  - Aspergillus infection [Fatal]
  - Colonic abscess [Fatal]
  - Pancreatic abscess [Fatal]
  - Splenic abscess [Fatal]
  - Systemic mycosis [Fatal]
